FAERS Safety Report 6450996-1 (Version None)
Quarter: 2009Q4

REPORT INFORMATION
  Report Type: 
  Country: None (occurrence: None)
  Receive Date: 20091123
  Receipt Date: 20091113
  Transmission Date: 20100525
  Serious: Yes (Hospitalization)
  Sender: FDA-Public Use
  Company Number: B0604174A

PATIENT
  Age: 76 Year
  Sex: Female

DRUGS (3)
  1. ALKERAN [Suspect]
     Dosage: 4MG PER DAY
     Route: 048
     Dates: start: 20090511
  2. THALIDOMIDE [Suspect]
     Dosage: 100MG PER DAY
     Route: 048
     Dates: start: 20090511
  3. SOLUPRED [Suspect]
     Dosage: 60MG PER DAY
     Route: 048
     Dates: start: 20090511

REACTIONS (1)
  - DEEP VEIN THROMBOSIS [None]
